FAERS Safety Report 20650608 (Version 1)
Quarter: 2022Q1

REPORT INFORMATION
  Report Type: Spontaneous
  Country: CA (occurrence: CA)
  Receive Date: 20220329
  Receipt Date: 20220329
  Transmission Date: 20220423
  Serious: Yes (Other)
  Sender: FDA-Public Use
  Company Number: CA-PFIZER INC-202200426048

PATIENT
  Age: 53 Year
  Sex: Male

DRUGS (4)
  1. XELJANZ [Suspect]
     Active Substance: TOFACITINIB CITRATE
     Dosage: 1 DF
     Route: 065
     Dates: start: 201606, end: 202203
  2. XELJANZ [Suspect]
     Active Substance: TOFACITINIB CITRATE
     Dosage: 1 DF
     Route: 065
     Dates: start: 201606
  3. THYROXINE [Concomitant]
     Active Substance: LEVOTHYROXINE
     Dosage: UNK
  4. ADVIL [Concomitant]
     Active Substance: IBUPROFEN
     Dosage: UNK

REACTIONS (7)
  - Hypothyroidism [Unknown]
  - Drug ineffective [Unknown]
  - Pain [Unknown]
  - Inflammation [Unknown]
  - Swelling [Unknown]
  - Fatigue [Unknown]
  - Gait inability [Unknown]

NARRATIVE: CASE EVENT DATE: 20220317
